FAERS Safety Report 5122765-6 (Version None)
Quarter: 2006Q4

REPORT INFORMATION
  Report Type: 
  Country: None (occurrence: None)
  Receive Date: 20061009
  Receipt Date: 20060629
  Transmission Date: 20070319
  Serious: Yes (Other)
  Sender: FDA-Public Use
  Company Number: PHFR2006GB02121

PATIENT
  Age: 43 Year
  Sex: Female

DRUGS (3)
  1. CLOZARIL [Suspect]
     Indication: SCHIZOPHRENIA
     Route: 048
     Dates: start: 20050408, end: 20060505
  2. MIRTAZAPINE [Concomitant]
     Dosage: 45MG/DAY
     Route: 048
     Dates: start: 20050408, end: 20051001
  3. VENLAFAXIINE HCL [Concomitant]
     Dosage: 150 MG/DAY
     Route: 048

REACTIONS (11)
  - ARTHRALGIA [None]
  - DIZZINESS [None]
  - DYSKINESIA [None]
  - FATIGUE [None]
  - INSOMNIA [None]
  - LOSS OF CONSCIOUSNESS [None]
  - LOWER RESPIRATORY TRACT INFECTION [None]
  - MYALGIA [None]
  - PITTING OEDEMA [None]
  - TREMOR [None]
  - URINARY INCONTINENCE [None]
